FAERS Safety Report 17159422 (Version 2)
Quarter: 2019Q4

REPORT INFORMATION
  Report Type: Report from Study
  Country: JP (occurrence: JP)
  Receive Date: 20191216
  Receipt Date: 20191218
  Transmission Date: 20200122
  Serious: No
  Sender: FDA-Public Use
  Company Number: JP-ACTELION PHARMACEUTICALS LTD.-A-CH2018-169448

PATIENT
  Age: 88 Year
  Sex: Female

DRUGS (14)
  1. SELARA [Concomitant]
     Active Substance: EPLERENONE
  2. NEXIUM [Concomitant]
     Active Substance: ESOMEPRAZOLE MAGNESIUM
  3. HYDROCHLOROTHIAZIDE. [Concomitant]
     Active Substance: HYDROCHLOROTHIAZIDE
  4. SINGULAIR [Concomitant]
     Active Substance: MONTELUKAST SODIUM
  5. MIRCERA [Concomitant]
     Active Substance: METHOXY POLYETHYLENE GLYCOL-EPOETIN BETA
  6. CLARITH [Concomitant]
     Active Substance: CLARITHROMYCIN
  7. FEBURIC [Concomitant]
     Active Substance: FEBUXOSTAT
  8. SAMSCA [Concomitant]
     Active Substance: TOLVAPTAN
  9. OPSUMIT [Suspect]
     Active Substance: MACITENTAN
     Indication: PULMONARY ARTERIAL HYPERTENSION
     Dosage: 10 MG, QD
     Route: 048
     Dates: start: 20160209
  10. LASIX [Concomitant]
     Active Substance: FUROSEMIDE
  11. THYRADIN S [Concomitant]
     Active Substance: LEVOTHYROXINE SODIUM
  12. IPD [Concomitant]
     Active Substance: SUPLATAST TOSILATE
  13. NESP [Concomitant]
     Active Substance: DARBEPOETIN ALFA
  14. WARFARIN [Concomitant]
     Active Substance: WARFARIN

REACTIONS (3)
  - Iron deficiency [Recovering/Resolving]
  - Anaemia [Recovering/Resolving]
  - Platelet count decreased [Not Recovered/Not Resolved]

NARRATIVE: CASE EVENT DATE: 20170622
